FAERS Safety Report 14890440 (Version 14)
Quarter: 2020Q2

REPORT INFORMATION
  Report Type: Report from Study
  Country: CA (occurrence: CA)
  Receive Date: 20180514
  Receipt Date: 20200627
  Transmission Date: 20200713
  Serious: Yes (Other)
  Sender: FDA-Public Use
  Company Number: CA-ROCHE-2053825

PATIENT
  Age: 42 Year
  Sex: Female

DRUGS (3)
  1. BOTOX [Concomitant]
     Active Substance: ONABOTULINUMTOXINA
     Indication: MIGRAINE
     Dosage: INFLAMMATION AT THE SITES FOR ABOUT A WEEK
     Route: 065
  2. OMEPRAZOLE. [Concomitant]
     Active Substance: OMEPRAZOLE
  3. OCREVUS [Suspect]
     Active Substance: OCRELIZUMAB
     Indication: RELAPSING-REMITTING MULTIPLE SCLEROSIS
     Dosage: INITIAL DOSAGE 300 MG DAY 0 AND DAY 14, THEN 600 MG EVERY 6 MONTHS?LIQUID
     Route: 042
     Dates: start: 20171121

REACTIONS (28)
  - Bronchitis [Recovered/Resolved]
  - Nasal congestion [Not Recovered/Not Resolved]
  - Conjunctivitis [Unknown]
  - Night sweats [Not Recovered/Not Resolved]
  - Swelling [Recovered/Resolved]
  - Paraesthesia [Not Recovered/Not Resolved]
  - Muscle fatigue [Not Recovered/Not Resolved]
  - Ear congestion [Not Recovered/Not Resolved]
  - Peripheral swelling [Recovering/Resolving]
  - Abdominal distension [Not Recovered/Not Resolved]
  - Asthenia [Not Recovered/Not Resolved]
  - Pain in extremity [Recovering/Resolving]
  - Hypersensitivity [Unknown]
  - Diarrhoea [Recovered/Resolved]
  - Rash papular [Recovering/Resolving]
  - Pharyngitis [Recovered/Resolved]
  - Increased viscosity of upper respiratory secretion [Not Recovered/Not Resolved]
  - Paraesthesia [Unknown]
  - Conjunctivitis [Not Recovered/Not Resolved]
  - Pyelonephritis [Not Recovered/Not Resolved]
  - Fatigue [Not Recovered/Not Resolved]
  - Hypoaesthesia [Unknown]
  - Nasopharyngitis [Recovered/Resolved]
  - Fungal infection [Not Recovered/Not Resolved]
  - Nocturia [Not Recovered/Not Resolved]
  - Arthralgia [Not Recovered/Not Resolved]
  - Arthritis [Recovering/Resolving]
  - Musculoskeletal stiffness [Recovering/Resolving]

NARRATIVE: CASE EVENT DATE: 20171121
